FAERS Safety Report 7538844-X (Version None)
Quarter: 2011Q2

REPORT INFORMATION
  Report Type: 
  Country: None (occurrence: None)
  Receive Date: 20110610
  Receipt Date: 20110519
  Transmission Date: 20111010
  Serious: Yes (Hospitalization, Other)
  Sender: FDA-Public Use
  Company Number: US-BAYER-2011-023735

PATIENT
  Age: 40 Year
  Sex: Female
  Weight: 58.957 kg

DRUGS (12)
  1. YAZ [Suspect]
     Indication: OVARIAN CYST
     Dosage: UNK
     Route: 048
     Dates: start: 20070901, end: 20100401
  2. VENTOLIN HFA [Concomitant]
     Dosage: UNK
     Dates: start: 20090201
  3. ALBUTEROL SULFATE AUTOHALER [Concomitant]
  4. ZITHROMAX [Concomitant]
     Dosage: UNK
     Dates: start: 20090201
  5. VALIUM [Concomitant]
     Indication: VERTIGO POSITIONAL
     Dosage: UNK UNK, PRN
  6. UNCODEABLE ^UNCLASSIFIABLE^ [Concomitant]
     Indication: PAIN
     Dosage: UNK
     Dates: start: 20100510
  7. PREDNISONE [Concomitant]
     Dosage: 20 MG, BID
     Dates: start: 20090201, end: 20090201
  8. ROCEPHIN [Concomitant]
     Dosage: 1 MG, UNK
     Dates: start: 20100301
  9. ATIVAN [Concomitant]
     Indication: ANXIETY
     Dosage: 0.5 MG, BID
  10. SYMBICORT [Concomitant]
     Dosage: UNK
     Dates: start: 20100401
  11. FLEXERIL [Concomitant]
     Dosage: 10 MG, TID
  12. ZITHROMAX [Concomitant]
     Dosage: UNK
     Dates: start: 20100301

REACTIONS (2)
  - PULMONARY EMBOLISM [None]
  - MENTAL DISORDER [None]
